FAERS Safety Report 25259332 (Version 1)
Quarter: 2025Q2

REPORT INFORMATION
  Report Type: Spontaneous
  Country: US (occurrence: None)
  Receive Date: 20250430
  Receipt Date: 20250430
  Transmission Date: 20250716
  Serious: No
  Sender: FDA-CTU
  Company Number: None

PATIENT
  Age: 74 Year
  Sex: Male
  Weight: 83.46 kg

DRUGS (9)
  1. FARXIGA [Suspect]
     Active Substance: DAPAGLIFLOZIN PROPANEDIOL
     Indication: Diabetes mellitus
     Dosage: 1 TAQBLET 1 X DAILY MORNING BY MOUTH
     Route: 048
     Dates: start: 20250401, end: 20250404
  2. METFORMIN [Concomitant]
     Active Substance: METFORMIN HYDROCHLORIDE
  3. SIMVASTATIN [Concomitant]
     Active Substance: SIMVASTATIN
  4. TAMSULOSIN [Concomitant]
     Active Substance: TAMSULOSIN
  5. VALSARTAN [Concomitant]
     Active Substance: VALSARTAN
  6. One Touch Ultra Blue Test Strips [Concomitant]
  7. VITAMIN D3 [Concomitant]
     Active Substance: CHOLECALCIFEROL
  8. VITAMIN B [Concomitant]
     Active Substance: VITAMIN B
  9. DOCUSATE SODIUM [Concomitant]
     Active Substance: DOCUSATE SODIUM

REACTIONS (10)
  - Fatigue [None]
  - Headache [None]
  - Asthenia [None]
  - Dizziness [None]
  - Confusional state [None]
  - Heart rate increased [None]
  - Dyspnoea [None]
  - Constipation [None]
  - Perineal pain [None]
  - Therapy cessation [None]

NARRATIVE: CASE EVENT DATE: 20250401
